FAERS Safety Report 8136548-6 (Version None)
Quarter: 2012Q1

REPORT INFORMATION
  Report Type: 
  Country: None (occurrence: None)
  Receive Date: 20120214
  Receipt Date: 20120208
  Transmission Date: 20120608
  Serious: Yes (Other)
  Sender: FDA-Public Use
  Company Number: PHEH2011US06122

PATIENT
  Sex: Male

DRUGS (1)
  1. AREDIA [Suspect]
     Dosage: 90 MG, UNK

REACTIONS (6)
  - OEDEMA PERIPHERAL [None]
  - TENDONITIS [None]
  - PHARYNGITIS [None]
  - CRUSH INJURY [None]
  - NASAL CAVITY CANCER [None]
  - CONTUSION [None]
